FAERS Safety Report 7363546-2 (Version None)
Quarter: 2011Q1

REPORT INFORMATION
  Report Type: 
  Country: None (occurrence: None)
  Receive Date: 20110321
  Receipt Date: 20110308
  Transmission Date: 20110831
  Serious: Yes (Other)
  Sender: FDA-Public Use
  Company Number: US-JNJFOC-20110304300

PATIENT
  Sex: Female
  Weight: 65.32 kg

DRUGS (3)
  1. HUMIRA [Suspect]
     Indication: CROHN'S DISEASE
     Route: 058
  2. QUETIAPINE FUMARATE [Concomitant]
     Indication: BIPOLAR DISORDER
  3. REMICADE [Suspect]
     Indication: PRODUCT USED FOR UNKNOWN INDICATION
     Route: 042

REACTIONS (3)
  - PULMONARY EMBOLISM [None]
  - SEPSIS [None]
  - INFECTION [None]
